FAERS Safety Report 23461849 (Version 1)
Quarter: 2024Q1

REPORT INFORMATION
  Report Type: Spontaneous
  Country: US (occurrence: None)
  Receive Date: 20240130
  Receipt Date: 20240130
  Transmission Date: 20240410
  Serious: Yes (unspecified)
  Sender: FDA-Public Use
  Company Number: None

PATIENT
  Age: 47 Year
  Sex: Female
  Weight: 134.1 kg

DRUGS (1)
  1. MOUNJARO [Suspect]
     Active Substance: TIRZEPATIDE
     Indication: Weight decreased
     Dosage: OTHER FREQUENCY : 1 TIME A WEEK;?
     Route: 058
     Dates: start: 20231218, end: 20240126

REACTIONS (3)
  - Incorrect dose administered [None]
  - Product dispensing error [None]
  - Adverse drug reaction [None]

NARRATIVE: CASE EVENT DATE: 20240130
